FAERS Safety Report 10938833 (Version 2)
Quarter: 2015Q2

REPORT INFORMATION
  Report Type: Spontaneous
  Country: US (occurrence: US)
  Receive Date: 20150321
  Receipt Date: 20150525
  Transmission Date: 20150821
  Serious: No
  Sender: FDA-Public Use
  Company Number: US-JNJFOC-20140417301

PATIENT
  Age: 54 Year
  Sex: Female
  Weight: 77.11 kg

DRUGS (2)
  1. RELPAX [Concomitant]
     Active Substance: ELETRIPTAN HYDROBROMIDE
     Indication: MIGRAINE
     Dosage: 1 TABLET??1 TABLET WITH ONSET OF MIGRAINE AND 1 TABLET, IF NEEDED, 2 HOURS??LATER
     Route: 048
  2. STELARA [Suspect]
     Active Substance: USTEKINUMAB
     Indication: PSORIASIS
     Route: 058
     Dates: start: 201403

REACTIONS (4)
  - Underdose [Not Recovered/Not Resolved]
  - Paraesthesia [Recovered/Resolved]
  - Product physical issue [Unknown]
  - Accidental exposure to product [Recovered/Resolved]

NARRATIVE: CASE EVENT DATE: 201403
